FAERS Safety Report 12560870 (Version 1)
Quarter: 2016Q3

REPORT INFORMATION
  Report Type: Spontaneous
  Country: US (occurrence: None)
  Receive Date: 20160714
  Receipt Date: 20160714
  Transmission Date: 20161109
  Serious: No
  Sender: FDA-Public Use
  Company Number: None

PATIENT
  Age: 62 Year
  Sex: Female

DRUGS (1)
  1. GRANIX [Suspect]
     Active Substance: TBO-FILGRASTIM
     Indication: PRODUCT USED FOR UNKNOWN INDICATION
     Dosage: DAILY FOR 10 DAYS
     Route: 058
     Dates: start: 20160523

REACTIONS (2)
  - Feeling abnormal [None]
  - Migraine [None]

NARRATIVE: CASE EVENT DATE: 20160524
